FAERS Safety Report 18711186 (Version 2)
Quarter: 2021Q1

REPORT INFORMATION
  Report Type: Spontaneous
  Country: IT (occurrence: IT)
  Receive Date: 20210107
  Receipt Date: 20210111
  Transmission Date: 20210419
  Serious: Yes (Other)
  Sender: FDA-Public Use
  Company Number: IT-ACCORD-213867

PATIENT
  Age: 17 Year
  Sex: Male
  Weight: 66 kg

DRUGS (16)
  1. VINCRISTINE [Suspect]
     Active Substance: VINCRISTINE
     Indication: ACUTE LYMPHOCYTIC LEUKAEMIA
     Route: 042
     Dates: start: 20200425, end: 20200428
  2. ANTRA [Concomitant]
     Active Substance: OMEPRAZOLE
  3. FLEBOCORTID RICHTER [Concomitant]
  4. ONCASPAR [Concomitant]
     Active Substance: PEGASPARGASE
     Dosage: STRENGTH:750 U/ML, SOLUTION FOR INJECTION/INFUSION
  5. CYTARABINE/CYTARABINE HYDROCHLORIDE/CYTARABINE OCFOSFATE [Suspect]
     Active Substance: CYTARABINE
     Indication: ACUTE LYMPHOCYTIC LEUKAEMIA
     Route: 042
     Dates: start: 20200425, end: 20200428
  6. LASIX [Concomitant]
     Active Substance: FUROSEMIDE
  7. NICETILE [Concomitant]
     Active Substance: LEVACECARNINE HYDROCHLORIDE
  8. DIFLUCAN [Concomitant]
     Active Substance: FLUCONAZOLE
  9. METHOTREXATE. [Suspect]
     Active Substance: METHOTREXATE
     Indication: ACUTE LYMPHOCYTIC LEUKAEMIA
     Route: 042
     Dates: start: 20200425, end: 20200428
  10. DECADRON [Concomitant]
     Active Substance: DEXAMETHASONE
  11. BACTRIM [Concomitant]
     Active Substance: SULFAMETHOXAZOLE\TRIMETHOPRIM
  12. ZOFRAN [Concomitant]
     Active Substance: ONDANSETRON HYDROCHLORIDE
  13. MYCOSTATIN [Concomitant]
     Active Substance: NYSTATIN
  14. TRIMETON [Concomitant]
     Active Substance: CHLORPHENIRAMINE MALEATE
  15. ZITHROMAX [Concomitant]
     Active Substance: AZITHROMYCIN DIHYDRATE
  16. VINCRISTINE [Concomitant]
     Active Substance: VINCRISTINE

REACTIONS (1)
  - Mucosal inflammation [Recovered/Resolved]

NARRATIVE: CASE EVENT DATE: 20200428
